FAERS Safety Report 13385011 (Version 1)
Quarter: 2017Q1

REPORT INFORMATION
  Report Type: Spontaneous
  Country: US (occurrence: US)
  Receive Date: 20170329
  Receipt Date: 20170329
  Transmission Date: 20170429
  Serious: No
  Sender: FDA-Public Use
  Company Number: US-SMITH AND NEPHEW, INC-2016SMT00466

PATIENT
  Sex: Male
  Weight: 58.96 kg

DRUGS (1)
  1. COLLAGENASE SANTYL [Suspect]
     Active Substance: COLLAGENASE CLOSTRIDIUM HISTOLYTICUM
     Indication: DEBRIDEMENT
     Dosage: UNK, 1X/DAY
     Route: 061
     Dates: start: 201605

REACTIONS (2)
  - Application site discolouration [Unknown]
  - Application site discharge [Unknown]

NARRATIVE: CASE EVENT DATE: 201605
